FAERS Safety Report 9670420 (Version 2)
Quarter: 2013Q4

REPORT INFORMATION
  Report Type: Spontaneous
  Country: GB (occurrence: GB)
  Receive Date: 20131105
  Receipt Date: 20131105
  Transmission Date: 20140711
  Serious: Yes (Other)
  Sender: FDA-Public Use
  Company Number: PHHY2004GB005734

PATIENT
  Sex: Female

DRUGS (1)
  1. CLOZARIL [Suspect]
     Indication: SCHIZOPHRENIA
     Dates: start: 20040119

REACTIONS (6)
  - Diarrhoea haemorrhagic [Recovering/Resolving]
  - Diarrhoea infectious [Recovering/Resolving]
  - Neutropenia [Recovered/Resolved]
  - Malaise [Unknown]
  - Platelet count decreased [Unknown]
  - Electrocardiogram change [Unknown]
